FAERS Safety Report 6813595-5 (Version None)
Quarter: 2010Q3

REPORT INFORMATION
  Report Type: 
  Country: None (occurrence: None)
  Receive Date: 20100701
  Receipt Date: 20100628
  Transmission Date: 20110219
  Serious: Yes (Other)
  Sender: FDA-Public Use
  Company Number: IT-PFIZER INC-2010080294

PATIENT
  Age: 31 Year
  Sex: Male

DRUGS (3)
  1. METHYLPREDNISOLONE [Suspect]
     Indication: MULTIPLE SCLEROSIS
     Dosage: 1 G, 1X/DAY
  2. BETAMETHASONE [Suspect]
     Indication: MULTIPLE SCLEROSIS RELAPSE
     Dosage: 4 MG, 1X/DAY
  3. TETRACOSACTRIN [Suspect]
     Indication: MULTIPLE SCLEROSIS RELAPSE
     Dosage: 0.25 MG, 1X/DAY

REACTIONS (6)
  - ACNE [None]
  - HYPERGLYCAEMIA [None]
  - HYPERTENSION [None]
  - OEDEMA [None]
  - OSTEONECROSIS [None]
  - PSYCHOTIC DISORDER [None]
